FAERS Safety Report 8108363-0 (Version None)
Quarter: 2012Q1

REPORT INFORMATION
  Report Type: 
  Country: None (occurrence: None)
  Receive Date: 20120202
  Receipt Date: 20120124
  Transmission Date: 20120608
  Serious: Yes (Other)
  Sender: FDA-Public Use
  Company Number: PHHY2011JP112452

PATIENT
  Age: 69 Year
  Sex: Male

DRUGS (1)
  1. TEGRETOL [Suspect]
     Indication: EPILEPSY
     Dosage: UNK UKN, UNK
     Route: 048
     Dates: start: 20020101, end: 20060101

REACTIONS (6)
  - CARCINOEMBRYONIC ANTIGEN INCREASED [None]
  - SWEAT GLAND TUMOUR [None]
  - LYMPHOCYTIC INFILTRATION [None]
  - SKIN LESION [None]
  - RASH PAPULAR [None]
  - SKIN HYPERPIGMENTATION [None]
